FAERS Safety Report 17752002 (Version 1)
Quarter: 2020Q2

REPORT INFORMATION
  Report Type: Spontaneous
  Country: DK (occurrence: DK)
  Receive Date: 20200506
  Receipt Date: 20200506
  Transmission Date: 20200714
  Serious: Yes (Other)
  Sender: FDA-Public Use
  Company Number: DK-JNJFOC-20200433904

PATIENT
  Age: 35 Year
  Sex: Female

DRUGS (3)
  1. CISORDINOL                         /00876702/ [Suspect]
     Active Substance: ZUCLOPENTHIXOL
     Indication: SCHIZOPHRENIA
     Route: 065
     Dates: start: 1995
  2. STILNOCT [Concomitant]
     Active Substance: ZOLPIDEM TARTRATE
     Indication: SCHIZOPHRENIA
     Route: 048
  3. RISPERDAL [Suspect]
     Active Substance: RISPERIDONE
     Indication: SCHIZOPHRENIA
     Dosage: USED IN VARIOUS PERIODS UNTIL 2009
     Route: 048
     Dates: start: 1995, end: 2009

REACTIONS (8)
  - Enophthalmos [Unknown]
  - Paralysis [Recovered/Resolved]
  - Facial paralysis [Recovering/Resolving]
  - Balance disorder [Unknown]
  - Vision blurred [Recovering/Resolving]
  - Muscle spasms [Unknown]
  - Epilepsy [Unknown]
  - Feeling abnormal [Unknown]

NARRATIVE: CASE EVENT DATE: 1995
